FAERS Safety Report 8858895 (Version 1)
Quarter: 2012Q4

REPORT INFORMATION
  Report Type: Spontaneous
  Country: US (occurrence: None)
  Receive Date: 20121019
  Receipt Date: 20121019
  Transmission Date: 20130627
  Serious: Yes (Hospitalization)
  Sender: FDA-Public Use
  Company Number: 2012AP003377

PATIENT
  Age: 65 Year
  Sex: Male

DRUGS (2)
  1. FLUOXETINE HYDROCHLORIDE [Suspect]
     Indication: DRUG USE FOR UNKNOWN INDICATION
  2. DONEPEZIL HYDROCHLORIDE [Suspect]
     Indication: DRUG USE FOR UNKNOWN INDICATION
     Dosage: 10  MG;

REACTIONS (7)
  - Cholinergic syndrome [None]
  - Agitation [None]
  - Drug interaction [None]
  - Faecal incontinence [None]
  - Abnormal behaviour [None]
  - Toxicity to various agents [None]
  - Drug level increased [None]
